FAERS Safety Report 7466906-4 (Version None)
Quarter: 2011Q2

REPORT INFORMATION
  Report Type: 
  Country: None (occurrence: None)
  Receive Date: 20110509
  Receipt Date: 20110322
  Transmission Date: 20111010
  Serious: Yes (Hospitalization)
  Sender: FDA-Public Use
  Company Number: US-BAYER-2011-020989

PATIENT
  Age: 25 Year
  Sex: Female
  Weight: 92.971 kg

DRUGS (2)
  1. FLEXERIL [Concomitant]
  2. YASMIN [Suspect]
     Indication: CONTRACEPTION
     Dosage: UNK
     Dates: start: 20050501, end: 20060601

REACTIONS (5)
  - GALLBLADDER DISORDER [None]
  - CHOLECYSTECTOMY [None]
  - CHOLECYSTITIS ACUTE [None]
  - LEUKOCYTOSIS [None]
  - CHOLELITHIASIS [None]
